FAERS Safety Report 6998631-8 (Version None)
Quarter: 2010Q3

REPORT INFORMATION
  Report Type: 
  Country: None (occurrence: None)
  Receive Date: 20100920
  Receipt Date: 20091208
  Transmission Date: 20110219
  Serious: No
  Sender: FDA-Public Use
  Company Number: US-ASTRAZENECA-2009SE31023

PATIENT
  Age: 69 Year
  Sex: Male

DRUGS (8)
  1. SEROQUEL XR [Suspect]
     Route: 048
  2. SEROQUEL XR [Suspect]
     Route: 048
  3. PLAVIX [Concomitant]
  4. ACIPHEX [Concomitant]
  5. AVALIDE [Concomitant]
  6. BYSTOLIC [Concomitant]
  7. ASPIRIN [Concomitant]
  8. SYNTHROID [Concomitant]

REACTIONS (3)
  - ABDOMINAL DISCOMFORT [None]
  - ANXIETY [None]
  - MOOD SWINGS [None]
